FAERS Safety Report 23535689 (Version 1)
Quarter: 2024Q1

REPORT INFORMATION
  Report Type: Report from Study
  Country: CA (occurrence: CA)
  Receive Date: 20240218
  Receipt Date: 20240218
  Transmission Date: 20240409
  Serious: Yes (Other)
  Sender: FDA-Public Use
  Company Number: CA-ABBVIE-5639415

PATIENT
  Sex: Female

DRUGS (3)
  1. RINVOQ [Suspect]
     Active Substance: UPADACITINIB
     Indication: Dermatitis atopic
     Dosage: FORM STRENGTH 30 MILLIGRAMS
     Route: 048
     Dates: start: 20221017
  2. EUCRISA [Suspect]
     Active Substance: CRISABOROLE
     Indication: Product used for unknown indication
     Route: 065
  3. PROTOPIC [Suspect]
     Active Substance: TACROLIMUS
     Indication: Product used for unknown indication
     Route: 065

REACTIONS (5)
  - Cholecystectomy [Unknown]
  - Burning sensation [Unknown]
  - Abdominal pain [Unknown]
  - Hepatic steatosis [Unknown]
  - Dermatitis atopic [Unknown]

NARRATIVE: CASE EVENT DATE: 20240201
